FAERS Safety Report 9444916 (Version 1)
Quarter: 2013Q3

REPORT INFORMATION
  Report Type: Spontaneous
  Country: GB (occurrence: GB)
  Receive Date: 20130807
  Receipt Date: 20130807
  Transmission Date: 20140515
  Serious: Yes (Disabling, Other)
  Sender: FDA-Public Use
  Company Number: PHHY2013GB082319

PATIENT
  Age: 38 Year
  Sex: Female
  Weight: 60.77 kg

DRUGS (1)
  1. VENLAFAXINE [Suspect]
     Indication: ANXIETY
     Dosage: 75 MG, QD
     Route: 048
     Dates: start: 201006, end: 201208

REACTIONS (2)
  - Nerve injury [Unknown]
  - Loss of libido [Not Recovered/Not Resolved]
